FAERS Safety Report 8256876-3 (Version None)
Quarter: 2012Q1

REPORT INFORMATION
  Report Type: 
  Country: None (occurrence: None)
  Receive Date: 20120330
  Receipt Date: 20120330
  Transmission Date: 20120608
  Serious: Yes (Other)
  Sender: FDA-Public Use
  Company Number: None

PATIENT
  Age: 59 Year
  Sex: Female
  Weight: 74.8435 kg

DRUGS (2)
  1. VIIBRYD [Suspect]
     Indication: MAJOR DEPRESSION
     Dosage: 10-20-40 MG. ONCE DAILY ORAL
     Route: 048
     Dates: start: 20110301, end: 20120201
  2. VIIBRYD [Suspect]
     Indication: DRUG RESISTANCE
     Dosage: 10-20-40 MG. ONCE DAILY ORAL
     Route: 048
     Dates: start: 20110301, end: 20120201

REACTIONS (3)
  - BLOOD PRESSURE INCREASED [None]
  - WEIGHT INCREASED [None]
  - TACHYCARDIA [None]
